FAERS Safety Report 25235826 (Version 1)
Quarter: 2025Q2

REPORT INFORMATION
  Report Type: Spontaneous
  Country: IN (occurrence: IN)
  Receive Date: 20250424
  Receipt Date: 20250424
  Transmission Date: 20250716
  Serious: Yes (Hospitalization, Other)
  Sender: SANDOZ
  Company Number: IN-SANDOZ-SDZ2024IN057529

PATIENT
  Sex: Male

DRUGS (1)
  1. TACROLIMUS [Suspect]
     Active Substance: TACROLIMUS
     Indication: Renal transplant
     Dosage: 1.5 MG, BID, TACSANT 1.5 MG MORNING + TACSANT 2 MG NIGHT
     Route: 048
     Dates: start: 20210219

REACTIONS (7)
  - Infection [Unknown]
  - Nephrosclerosis [Unknown]
  - Graft complication [Unknown]
  - Breath odour [Unknown]
  - Asthenia [Unknown]
  - Cough [Unknown]
  - Diarrhoea [Unknown]
